FAERS Safety Report 4803383-3 (Version None)
Quarter: 2005Q4

REPORT INFORMATION
  Report Type: 
  Country: None (occurrence: None)
  Receive Date: 20051019
  Receipt Date: 20051012
  Transmission Date: 20060501
  Serious: Yes (Death)
  Sender: FDA-Public Use
  Company Number: US-JNJFOC-20051003023

PATIENT
  Age: 44 Year
  Sex: Male

DRUGS (4)
  1. RISPERDAL [Suspect]
     Indication: DRUG USE FOR UNKNOWN INDICATION
  2. HALDOL [Suspect]
     Indication: DRUG USE FOR UNKNOWN INDICATION
  3. LITHIUM [Concomitant]
  4. ANTILIRIUM [Concomitant]

REACTIONS (2)
  - CARDIAC ARREST [None]
  - DEATH [None]
